FAERS Safety Report 15661497 (Version 1)
Quarter: 2018Q4

REPORT INFORMATION
  Report Type: Report from Study
  Country: US (occurrence: US)
  Receive Date: 20181127
  Receipt Date: 20181127
  Transmission Date: 20190205
  Serious: Yes (Other)
  Sender: FDA-Public Use
  Company Number: PHEH2018US049059

PATIENT
  Age: 13 Year
  Sex: Male

DRUGS (2)
  1. AFINITOR [Suspect]
     Active Substance: EVEROLIMUS
     Indication: ASTROCYTOMA, LOW GRADE
     Dosage: 2.5 MG, QD
     Route: 048
     Dates: start: 20110706
  2. AFINITOR [Suspect]
     Active Substance: EVEROLIMUS
     Dosage: 5 MG, (2.5 MG ALTERNATING WITH 5 MG EVERY OTHER DAY)
     Route: 048

REACTIONS (2)
  - Tuberous sclerosis complex [Unknown]
  - Disease progression [Unknown]

NARRATIVE: CASE EVENT DATE: 20181031
